FAERS Safety Report 8324926-1 (Version None)
Quarter: 2012Q2

REPORT INFORMATION
  Report Type: 
  Country: None (occurrence: None)
  Receive Date: 20120501
  Receipt Date: 20120426
  Transmission Date: 20120825
  Serious: Yes (Life-Threatening, Other)
  Sender: FDA-Public Use
  Company Number: US-ASTELLAS-2012US004266

PATIENT
  Age: 68 Year
  Sex: Female

DRUGS (1)
  1. LEXISCAN [Suspect]
     Indication: PRODUCT USED FOR UNKNOWN INDICATION
     Dosage: UNK
     Route: 065
     Dates: start: 20120426, end: 20120426

REACTIONS (6)
  - DYSPNOEA [None]
  - CHEST PAIN [None]
  - PULMONARY OEDEMA [None]
  - RESPIRATORY ARREST [None]
  - PLATELET COUNT INCREASED [None]
  - MYOCARDIAL ISCHAEMIA [None]
